FAERS Safety Report 23904789 (Version 1)
Quarter: 2024Q2

REPORT INFORMATION
  Report Type: Spontaneous
  Country: PL (occurrence: PL)
  Receive Date: 20240527
  Receipt Date: 20240527
  Transmission Date: 20240716
  Serious: Yes (Other)
  Sender: FDA-Public Use
  Company Number: PL-CELLTRION INC.-2024PL011936

PATIENT

DRUGS (2)
  1. RITUXIMAB [Suspect]
     Active Substance: RITUXIMAB
     Indication: Product used for unknown indication
     Dosage: 660 MILLIGRAM (ADDITIONAL INFORMATION ON DRUG (FREE TEXT): RB REGIMEN)
     Dates: start: 201912
  2. BENDAMUSTINE [Suspect]
     Active Substance: BENDAMUSTINE
     Indication: Product used for unknown indication
     Dosage: 100 MILLIGRAM (ADDITIONAL INFORMATION ON DRUG (FREE TEXT): RB REGIMEN)
     Dates: start: 201912

REACTIONS (1)
  - Stomatitis [Recovered/Resolved]
